FAERS Safety Report 15157958 (Version 1)
Quarter: 2018Q3

REPORT INFORMATION
  Report Type: Spontaneous
  Country: FR (occurrence: FR)
  Receive Date: 20180718
  Receipt Date: 20180718
  Transmission Date: 20181010
  Serious: Yes (Hospitalization, Congenital Anomaly)
  Sender: FDA-Public Use
  Company Number: FR-ROCHE-2154088

PATIENT
  Age: 0 Day
  Sex: Female
  Weight: 2.5 kg

DRUGS (1)
  1. MABTHERA [Suspect]
     Active Substance: RITUXIMAB
     Indication: PRODUCT USED FOR UNKNOWN INDICATION
     Dosage: DOSE ADMINISTERED TO MOTHER 1 GM
     Route: 064
     Dates: start: 20171017, end: 20180525

REACTIONS (3)
  - Neonatal respiratory failure [Not Recovered/Not Resolved]
  - Congenital floppy infant [Not Recovered/Not Resolved]
  - Foetal exposure during pregnancy [Unknown]

NARRATIVE: CASE EVENT DATE: 20180525
